FAERS Safety Report 20690879 (Version 2)
Quarter: 2022Q3

REPORT INFORMATION
  Report Type: Report from Study
  Country: US (occurrence: US)
  Receive Date: 20220408
  Receipt Date: 20220712
  Transmission Date: 20221027
  Serious: Yes (Other)
  Sender: FDA-Public Use
  Company Number: US-BRISTOL-MYERS SQUIBB COMPANY-2022-015790

PATIENT
  Age: 80 Year
  Sex: Female
  Weight: 70.30 kg

DRUGS (5)
  1. POMALYST [Suspect]
     Active Substance: POMALIDOMIDE
     Indication: Plasma cell myeloma
     Dosage: 21 OUT OF 28 DAYS
     Route: 048
     Dates: start: 202109
  2. POMALYST [Suspect]
     Active Substance: POMALIDOMIDE
     Route: 065
  3. POMALYST [Suspect]
     Active Substance: POMALIDOMIDE
     Dosage: DAILY
     Route: 048
  4. DEXAMETHASONE [Concomitant]
     Active Substance: DEXAMETHASONE
  5. XARELTO [Concomitant]
     Active Substance: RIVAROXABAN

REACTIONS (2)
  - White blood cell count decreased [Unknown]
  - Sepsis [Unknown]

NARRATIVE: CASE EVENT DATE: 20220308
